FAERS Safety Report 22303541 (Version 1)
Quarter: 2023Q2

REPORT INFORMATION
  Report Type: Spontaneous
  Country: US (occurrence: None)
  Receive Date: 20230509
  Receipt Date: 20230509
  Transmission Date: 20230722
  Serious: No
  Sender: FDA-Public Use
  Company Number: None

PATIENT
  Age: 82 Year
  Sex: Female
  Weight: 64.86 kg

DRUGS (13)
  1. CAPECITABINE [Suspect]
     Active Substance: CAPECITABINE
     Indication: Breast cancer female
     Dosage: OTHER FREQUENCY : 1W,1WOFF;?
     Route: 048
  2. ACETAMINOPHEN [Concomitant]
     Active Substance: ACETAMINOPHEN
  3. ADVIL [Concomitant]
     Active Substance: IBUPROFEN
  4. B-COMPLEX 50 [Concomitant]
  5. COENZYME Q10 [Concomitant]
     Active Substance: DIETARY SUPPLEMENT\UBIDECARENONE
  6. LETROZOLE [Concomitant]
  7. MAGNESIUM OXIDE [Concomitant]
  8. MULTI VITAMIN DAILY [Concomitant]
  9. OXYCODONE [Concomitant]
     Active Substance: OXYCODONE
  10. PRESERVISION [Concomitant]
  11. AREADS 2 [Concomitant]
  12. TUMERIC [Concomitant]
  13. VITAMIN D3 [Concomitant]

REACTIONS (2)
  - Breast cancer metastatic [None]
  - Rash [None]
